FAERS Safety Report 7454497-3 (Version None)
Quarter: 2011Q2

REPORT INFORMATION
  Report Type: 
  Country: None (occurrence: None)
  Receive Date: 20110503
  Receipt Date: 20110419
  Transmission Date: 20111010
  Serious: Yes (Other)
  Sender: FDA-Public Use
  Company Number: PHHY2011JP13567

PATIENT
  Sex: Female
  Weight: 47 kg

DRUGS (5)
  1. MAXALT [Concomitant]
     Indication: MIGRAINE
     Dosage: 10 MG, UNK
     Route: 048
  2. ZOMETA [Suspect]
     Indication: LUNG NEOPLASM MALIGNANT
     Dosage: 4 MG, UNK
     Route: 041
  3. PURSENNID                               /SCH/ [Concomitant]
     Indication: CONSTIPATION
     Dosage: 36 MG, UNK
     Route: 048
  4. PANVITAN [Concomitant]
     Indication: HYPOVITAMINOSIS
     Dosage: 1 G, UNK
     Route: 048
  5. MAGMITT KENEI [Concomitant]
     Indication: CONSTIPATION
     Dosage: 990 MG, UNK
     Route: 048

REACTIONS (6)
  - ULCERATIVE KERATITIS [None]
  - CORNEAL OPACITY [None]
  - EYE PAIN [None]
  - EYE DISCHARGE [None]
  - INFECTION [None]
  - OCULAR HYPERAEMIA [None]
